FAERS Safety Report 12699761 (Version 1)
Quarter: 2016Q3

REPORT INFORMATION
  Report Type: Spontaneous
  Country: US (occurrence: US)
  Receive Date: 20160830
  Receipt Date: 20160830
  Transmission Date: 20161109
  Serious: Yes (Life-Threatening, Hospitalization)
  Sender: FDA-Public Use
  Company Number: US-LPDUSPRD-20160755

PATIENT
  Age: 36 Year
  Sex: Female

DRUGS (3)
  1. MORPHINE [Concomitant]
     Active Substance: MORPHINE
     Dosage: 5 MG
     Route: 042
  2. ONDANSETRON INJECTION (4420-01) [Suspect]
     Active Substance: ONDANSETRON
     Dosage: 4MG
     Route: 042
  3. INDOMETHACIN. [Concomitant]
     Active Substance: INDOMETHACIN
     Dosage: 50 MG
     Route: 048

REACTIONS (3)
  - Cardiac arrest [Unknown]
  - Exposure during pregnancy [Unknown]
  - Bradycardia [Unknown]
